FAERS Safety Report 7254589-8 (Version None)
Quarter: 2011Q1

REPORT INFORMATION
  Report Type: 
  Country: None (occurrence: None)
  Receive Date: 20110129
  Receipt Date: 20100220
  Transmission Date: 20110831
  Serious: No
  Sender: FDA-Public Use
  Company Number: US-ABBOTT-10P-163-0627859-00

PATIENT
  Sex: Female
  Weight: 55.388 kg

DRUGS (2)
  1. TRAMADOL HCL [Concomitant]
     Indication: PRODUCT USED FOR UNKNOWN INDICATION
     Dosage: 325 MILLIGRAMS 45 MINUTES BEFORE DOING INJECTION
  2. HUMIRA [Suspect]
     Indication: RHEUMATOID ARTHRITIS
     Dosage: DAY 1
     Dates: start: 20090218

REACTIONS (1)
  - INJECTION SITE PAIN [None]
